FAERS Safety Report 10489354 (Version 1)
Quarter: 2014Q3

REPORT INFORMATION
  Report Type: Spontaneous
  Country: PL (occurrence: None)
  Receive Date: 20140930
  Receipt Date: 20140930
  Transmission Date: 20150326
  Serious: Yes (Death, Other)
  Sender: FDA-Public Use
  Company Number: ADR-2014-01773

PATIENT
  Sex: Male

DRUGS (6)
  1. LEVODOPA [Suspect]
     Active Substance: LEVODOPA
  2. BOTULINUM TOXIN [Suspect]
     Active Substance: BOTULINUM TOXIN TYPE A
  3. CLONAZEPAM. [Suspect]
     Active Substance: CLONAZEPAM
  4. HALOPERIDOL. [Suspect]
     Active Substance: HALOPERIDOL
  5. TRIHEXYPHENIDYL [Suspect]
     Active Substance: TRIHEXYPHENIDYL
     Indication: DYSTONIA
  6. BACLOFEN. [Suspect]
     Active Substance: BACLOFEN
     Indication: DYSTONIA

REACTIONS (2)
  - Pneumonia [None]
  - Drug ineffective [None]

NARRATIVE: CASE EVENT DATE: 20140729
